FAERS Safety Report 8828835 (Version 1)
Quarter: 2012Q4

REPORT INFORMATION
  Report Type: 
  Country: US (occurrence: US)
  Receive Date: 20121008
  Receipt Date: 20121008
  Transmission Date: 20130627
  Serious: Yes (Death)
  Sender: FDA-Public Use
  Company Number: US-GILEAD-2012-0062391

PATIENT
  Sex: Male

DRUGS (15)
  1. LETAIRIS [Suspect]
     Indication: PULMONARY HYPERTENSION
     Dosage: 5 mg, QD
     Route: 048
     Dates: start: 20120405, end: 20120907
  2. GABAPENTIN [Concomitant]
  3. FAMOTIDINE [Concomitant]
  4. ZAROXOLYN [Concomitant]
  5. WARFARIN [Concomitant]
  6. ALLOPURINOL [Concomitant]
  7. COREG [Concomitant]
  8. GLIMEPIRIDE [Concomitant]
  9. SIMVASTATIN [Concomitant]
  10. INSPRA                             /01613601/ [Concomitant]
  11. FUROSEMIDE [Concomitant]
  12. COZAAR [Concomitant]
  13. PROVENTIL                          /00139501/ [Concomitant]
  14. CLOPIDOGREL [Concomitant]
  15. ASPIRIN [Concomitant]

REACTIONS (1)
  - Death [Fatal]
